FAERS Safety Report 9113585 (Version 1)
Quarter: 2013Q1

REPORT INFORMATION
  Report Type: Spontaneous
  Country: PL (occurrence: PL)
  Receive Date: 20130208
  Receipt Date: 20130208
  Transmission Date: 20140127
  Serious: Yes (Other)
  Sender: FDA-Public Use
  Company Number: PL-ROCHE-1185604

PATIENT
  Age: 80 Year
  Sex: Female

DRUGS (2)
  1. RANIBIZUMAB [Suspect]
     Indication: PRODUCT USED FOR UNKNOWN INDICATION
     Route: 050
  2. HEPARIN [Concomitant]

REACTIONS (4)
  - Macular oedema [Unknown]
  - Macular oedema [Unknown]
  - Eye disorder [Unknown]
  - Retinitis [Unknown]
